FAERS Safety Report 4442362-5 (Version None)
Quarter: 2004Q3

REPORT INFORMATION
  Report Type: 
  Country: None (occurrence: None)
  Receive Date: 20040903
  Receipt Date: 20040721
  Transmission Date: 20050211
  Serious: No
  Sender: FDA-Public Use
  Company Number: 2004UW15372

PATIENT
  Age: 89 Year
  Sex: Female

DRUGS (1)
  1. CRESTOR [Suspect]

REACTIONS (3)
  - MUSCLE ATROPHY [None]
  - MUSCULAR WEAKNESS [None]
  - PLATELET COUNT DECREASED [None]
